FAERS Safety Report 4470785-7 (Version None)
Quarter: 2004Q4

REPORT INFORMATION
  Report Type: 
  Country: None (occurrence: None)
  Receive Date: 20041007
  Receipt Date: 20041007
  Transmission Date: 20050328
  Serious: Yes (Life-Threatening)
  Sender: FDA-Public Use
  Company Number: None

PATIENT
  Age: 60 Year
  Sex: Male
  Weight: 72.5755 kg

DRUGS (3)
  1. VIAGRA [Suspect]
     Dosage: AS NEEDED   ORAL
     Route: 048
     Dates: start: 20000101, end: 20000208
  2. VIOXX [Suspect]
     Indication: ARTHRITIS
     Dosage: DAILY   ORAL
     Route: 048
     Dates: start: 20000213, end: 20040930
  3. TIA [Concomitant]

REACTIONS (2)
  - ARTHRITIS [None]
  - CEREBROVASCULAR ACCIDENT [None]
